FAERS Safety Report 22609632 (Version 2)
Quarter: 2023Q2

REPORT INFORMATION
  Report Type: Spontaneous
  Country: US (occurrence: US)
  Receive Date: 20230616
  Receipt Date: 20230622
  Transmission Date: 20230721
  Serious: Yes (Other)
  Sender: FDA-Public Use
  Company Number: US-PFIZER INC-PV202300105853

PATIENT
  Age: 75 Year
  Sex: Female

DRUGS (8)
  1. INOTUZUMAB OZOGAMICIN [Suspect]
     Active Substance: INOTUZUMAB OZOGAMICIN
     Indication: B-cell type acute leukaemia
     Dosage: 0.8 MG/M2, FIRST DOSE ON CYCLE 1
  2. INOTUZUMAB OZOGAMICIN [Suspect]
     Active Substance: INOTUZUMAB OZOGAMICIN
     Dosage: 0.5 MG/M2, 2ND AND 3RD DOSE ON CYCLE 1
  3. INOTUZUMAB OZOGAMICIN [Suspect]
     Active Substance: INOTUZUMAB OZOGAMICIN
     Dosage: UNKNOWN DOSES ON CYCLE 2
  4. INOTUZUMAB OZOGAMICIN [Suspect]
     Active Substance: INOTUZUMAB OZOGAMICIN
     Dosage: 0.5 MG/M2, CYCLIC (C3D1 INOTUZUMAB 0.5/0.5/HELD LAST 0)
  5. INOTUZUMAB OZOGAMICIN [Suspect]
     Active Substance: INOTUZUMAB OZOGAMICIN
     Dosage: 0.5 MG/M2, CYCLIC (C4D1 INOTUZUMAB 0.5/0.5/HELD LAST 0.5)
  6. INOTUZUMAB OZOGAMICIN [Suspect]
     Active Substance: INOTUZUMAB OZOGAMICIN
     Dosage: 0.5 MG/M2, CYCLIC (0.5/0.5/HELD LAST 0.5)
  7. URSODIOL [Concomitant]
     Active Substance: URSODIOL
     Dosage: UNK
  8. METHOTREXATE [Concomitant]
     Active Substance: METHOTREXATE
     Indication: Prophylaxis
     Dosage: UNK, 1X/CYCLE
     Route: 037

REACTIONS (4)
  - Cytopenia [Unknown]
  - Neutropenia [Unknown]
  - Fatigue [Unknown]
  - Physical deconditioning [Unknown]
